FAERS Safety Report 8264389-8 (Version None)
Quarter: 2012Q2

REPORT INFORMATION
  Report Type: 
  Country: None (occurrence: None)
  Receive Date: 20120406
  Receipt Date: 20120329
  Transmission Date: 20120825
  Serious: Yes (Other)
  Sender: FDA-Public Use
  Company Number: PHHY2012BR003034

PATIENT
  Age: 71 Year
  Sex: Female

DRUGS (2)
  1. LASIX [Concomitant]
     Indication: DIURETIC THERAPY
     Dosage: 1 TABLET A DAY
     Route: 048
  2. EXFORGE [Suspect]
     Indication: HYPERTENSION
     Dosage: ONE TABLET (320/10MG) DAILY
     Route: 048

REACTIONS (1)
  - MACULAR DEGENERATION [None]
